FAERS Safety Report 23785853 (Version 1)
Quarter: 2024Q2

REPORT INFORMATION
  Report Type: Spontaneous
  Country: JP (occurrence: JP)
  Receive Date: 20240425
  Receipt Date: 20240425
  Transmission Date: 20240716
  Serious: No
  Sender: FDA-Public Use
  Company Number: JP-WT-2023-14779

PATIENT
  Age: 81 Year
  Sex: Female

DRUGS (2)
  1. LUNESTA [Suspect]
     Active Substance: ESZOPICLONE
     Route: 048
  2. Aneton [Concomitant]
     Indication: Cough
     Route: 048

REACTIONS (2)
  - Dizziness [Unknown]
  - Rash [Unknown]
